FAERS Safety Report 13771479 (Version 1)
Quarter: 2017Q3

REPORT INFORMATION
  Report Type: Spontaneous
  Country: GB (occurrence: GB)
  Receive Date: 20170720
  Receipt Date: 20170720
  Transmission Date: 20171127
  Serious: Yes (Other)
  Sender: FDA-Public Use
  Company Number: GB-SHIRE-GB201716034

PATIENT
  Age: 16 Year
  Sex: Male
  Weight: 58.6 kg

DRUGS (1)
  1. ELVANSE [Suspect]
     Active Substance: LISDEXAMFETAMINE DIMESYLATE
     Indication: ATTENTION DEFICIT/HYPERACTIVITY DISORDER
     Dosage: 50 MG, UNKNOWN
     Route: 048
     Dates: start: 201409, end: 2014

REACTIONS (3)
  - Tic [Recovered/Resolved]
  - Hallucination, auditory [Recovered/Resolved]
  - Irritability [Recovered/Resolved]
